FAERS Safety Report 10985030 (Version 1)
Quarter: 2015Q1

REPORT INFORMATION
  Report Type: Spontaneous
  Country: US (occurrence: None)
  Receive Date: 20150312
  Receipt Date: 20150312
  Transmission Date: 20150721
  Serious: Yes (Other)
  Sender: FDA-Public Use
  Company Number: 1000065758

PATIENT
  Age: 58 Year
  Sex: Female

DRUGS (4)
  1. SAVELLA [Suspect]
     Active Substance: MILNACIPRAN HYDROCHLORIDE
     Indication: FIBROMYALGIA
     Dosage: 12.5MG (12.5 MG, 1 IN 1 D), ORAL
     Route: 048
     Dates: start: 201401, end: 2014
  2. AMITRIPTYLINE (AMITRIPTYLINE) (AMITRIPTYLINE) [Concomitant]
     Active Substance: AMITRIPTYLINE
  3. HYDROCODONE (HYDROCODONE) (HYDROCODONE) [Concomitant]
     Active Substance: HYDROCODONE
  4. LORAZEPAM (LORAZEPAM) (LORAZEPAM) [Concomitant]
     Active Substance: LORAZEPAM

REACTIONS (4)
  - Blood pressure increased [None]
  - Palpitations [None]
  - Feeling abnormal [None]
  - Heart rate increased [None]

NARRATIVE: CASE EVENT DATE: 201401
